FAERS Safety Report 8333587-7 (Version None)
Quarter: 2012Q2

REPORT INFORMATION
  Report Type: 
  Country: None (occurrence: None)
  Receive Date: 20120503
  Receipt Date: 20110328
  Transmission Date: 20120825
  Serious: No
  Sender: FDA-Public Use
  Company Number: US-TEVA-2010006033

PATIENT
  Sex: Male
  Weight: 81.72 kg

DRUGS (2)
  1. NUVIGIL [Suspect]
     Indication: NARCOLEPSY
     Route: 048
     Dates: start: 20070101, end: 20100201
  2. NUVIGIL [Suspect]
     Route: 048
     Dates: start: 20100201

REACTIONS (1)
  - DRUG TOLERANCE [None]
